FAERS Safety Report 14898344 (Version 4)
Quarter: 2018Q2

REPORT INFORMATION
  Report Type: Spontaneous
  Country: US (occurrence: US)
  Receive Date: 20180515
  Receipt Date: 20180531
  Transmission Date: 20180711
  Serious: Yes (Other)
  Sender: FDA-Public Use
  Company Number: US-SA-2018SA115956

PATIENT
  Age: 82 Year
  Sex: Female

DRUGS (2)
  1. HUMALOG [Concomitant]
     Active Substance: INSULIN LISPRO
  2. TOUJEO [Suspect]
     Active Substance: INSULIN GLARGINE
     Dosage: 50 DF,QD
     Route: 051
     Dates: start: 201801

REACTIONS (3)
  - Brain neoplasm [Unknown]
  - Device issue [Unknown]
  - Injection site haemorrhage [Unknown]
